FAERS Safety Report 5111614-8 (Version None)
Quarter: 2006Q3

REPORT INFORMATION
  Report Type: 
  Country: None (occurrence: None)
  Receive Date: 20060922
  Receipt Date: 20060906
  Transmission Date: 20061208
  Serious: Yes (Other)
  Sender: FDA-Public Use
  Company Number: PHBS2006JP13692

PATIENT
  Age: 58 Year
  Sex: Male

DRUGS (7)
  1. TEGRETOL [Suspect]
     Indication: METASTATIC PAIN
     Dosage: 400 MG/DAY
     Route: 065
  2. OXYCONTIN [Concomitant]
     Indication: METASTATIC PAIN
     Dosage: 140 MG/DAY
     Route: 065
  3. OXYCONTIN [Concomitant]
     Dosage: 200 MG/DAY
     Route: 065
  4. OXYCONTIN [Concomitant]
     Dosage: 90 MG/DAY
     Route: 065
  5. CLONAZEPAM [Concomitant]
     Indication: METASTATIC PAIN
     Dosage: 2 MG/DAY
     Route: 065
  6. MORPHINE [Concomitant]
  7. BUPIVACAINE [Concomitant]
     Route: 037

REACTIONS (3)
  - DELIRIUM [None]
  - FALL [None]
  - SOMNOLENCE [None]
